FAERS Safety Report 8401619-3 (Version None)
Quarter: 2012Q2

REPORT INFORMATION
  Report Type: 
  Country: None (occurrence: None)
  Receive Date: 20120601
  Receipt Date: 20120530
  Transmission Date: 20120825
  Serious: Yes (Death, Hospitalization)
  Sender: FDA-Public Use
  Company Number: PHHO2012FR008200

PATIENT
  Sex: Female
  Weight: 52 kg

DRUGS (5)
  1. SPIRIVA [Concomitant]
     Indication: BRONCHITIS
     Dosage: UNK
     Dates: start: 20070101
  2. OMEPRAZOLE [Concomitant]
     Indication: GASTROOESOPHAGEAL REFLUX DISEASE
     Dosage: 20 MG, UNK
  3. AFINITOR [Suspect]
     Indication: PANCREATIC NEUROENDOCRINE TUMOUR
     Dosage: 10 MG, UNK
     Dates: start: 20120502, end: 20120528
  4. SOM230 [Suspect]
     Indication: PANCREATIC NEUROENDOCRINE TUMOUR
     Dosage: 60 MG, UNK
     Dates: start: 20120502, end: 20120502
  5. CANDESARTAN CILEXETIL [Concomitant]
     Indication: HYPERTENSION
     Dosage: 8 MG, UNK
     Dates: start: 20020101

REACTIONS (5)
  - KETOACIDOSIS [None]
  - NEOPLASM MALIGNANT [None]
  - DEATH [None]
  - NEOPLASM PROGRESSION [None]
  - PANCREATIC NEUROENDOCRINE TUMOUR [None]
